FAERS Safety Report 6142025-4 (Version None)
Quarter: 2009Q2

REPORT INFORMATION
  Report Type: 
  Country: None (occurrence: None)
  Receive Date: 20090402
  Receipt Date: 20090318
  Transmission Date: 20091009
  Serious: Yes (Life-Threatening, Disabling)
  Sender: FDA-Public Use
  Company Number: CZ-PFIZER INC-2008155922

PATIENT

DRUGS (8)
  1. BLINDED *PLACEBO [Suspect]
     Indication: PULMONARY HYPERTENSION
     Dosage: 20 MG, 3X/DAY
     Route: 048
     Dates: start: 20080114
  2. BLINDED SILDENAFIL CITRATE [Suspect]
     Indication: PULMONARY HYPERTENSION
     Dosage: 20 MG, 3X/DAY
     Route: 048
     Dates: start: 20080114
  3. WARFARIN [Concomitant]
     Dosage: UNK
     Route: 048
     Dates: start: 20020101
  4. SIMVASTATIN [Concomitant]
     Dosage: UNK
     Route: 048
     Dates: start: 20020101
  5. HYMECROMONE [Concomitant]
     Dosage: UNK
     Route: 048
     Dates: start: 20080819
  6. PANTOPRAZOLE [Concomitant]
     Dosage: UNK
     Route: 048
     Dates: start: 20080819
  7. OTILONIUM BROMIDE [Concomitant]
     Dosage: UNK
     Route: 048
     Dates: start: 20080819
  8. CITALOPRAM [Concomitant]
     Dosage: UNK
     Route: 048
     Dates: start: 20080918

REACTIONS (2)
  - PANCREATIC DISORDER [None]
  - PANCREATITIS CHRONIC [None]
